FAERS Safety Report 7933944-4 (Version None)
Quarter: 2011Q4

REPORT INFORMATION
  Report Type: 
  Country: None (occurrence: None)
  Receive Date: 20111122
  Receipt Date: 20111116
  Transmission Date: 20120403
  Serious: Yes (Hospitalization)
  Sender: FDA-Public Use
  Company Number: JP-JNJFOC-20110806835

PATIENT
  Age: 52 Year
  Sex: Male
  Weight: 61 kg

DRUGS (12)
  1. REMICADE [Suspect]
     Indication: COLITIS ULCERATIVE
     Dosage: 2 TOTAL INFUSIONS
     Route: 042
     Dates: start: 20110720
  2. PREDNISOLONE [Suspect]
     Route: 048
     Dates: start: 20110629, end: 20110712
  3. ASACOL [Concomitant]
     Indication: COLITIS ULCERATIVE
     Route: 048
     Dates: start: 20110629
  4. PENTASA [Concomitant]
     Indication: COLITIS ULCERATIVE
     Route: 048
     Dates: end: 20110628
  5. PREDNISOLONE [Concomitant]
     Route: 048
     Dates: start: 20110810
  6. PREDNISOLONE [Concomitant]
     Route: 048
     Dates: start: 20110727, end: 20110809
  7. ISONIAZID [Concomitant]
     Indication: ANTIBIOTIC PROPHYLAXIS
     Dates: start: 20110706
  8. REMICADE [Suspect]
     Route: 042
     Dates: start: 20110706
  9. PREDNISOLONE [Suspect]
     Route: 048
     Dates: start: 20110614, end: 20110628
  10. OMEPRAZOLE [Concomitant]
     Indication: PROPHYLAXIS
     Route: 048
     Dates: start: 20110713
  11. PREDNISOLONE [Suspect]
     Indication: COLITIS ULCERATIVE
     Route: 048
     Dates: start: 20110713, end: 20110726
  12. PREDONEMA [Concomitant]
     Indication: COLITIS ULCERATIVE
     Route: 054
     Dates: end: 20110719

REACTIONS (2)
  - PNEUMOCYSTIS JIROVECI PNEUMONIA [None]
  - ANAEMIA [None]
